FAERS Safety Report 17023934 (Version 2)
Quarter: 2019Q4

REPORT INFORMATION
  Report Type: Spontaneous
  Country: US (occurrence: US)
  Receive Date: 20191113
  Receipt Date: 20191207
  Transmission Date: 20200122
  Serious: Yes (Other)
  Sender: FDA-Public Use
  Company Number: US-AUROBINDO-AUR-APL-2019-070729

PATIENT
  Age: 75 Year
  Sex: Female

DRUGS (2)
  1. BUPIVACAINE HYDROCHLORIDE INJECTION USP 0.5% (5 MG/ML) [Suspect]
     Active Substance: BUPIVACAINE HYDROCHLORIDE
     Indication: NERVE BLOCK
     Dosage: UNK (3 ML OF LA)
     Route: 065
  2. EPINEPHRINE. [Suspect]
     Active Substance: EPINEPHRINE
     Indication: NERVE BLOCK
     Dosage: UNK (EPINEPHRINE 1:200,000, 3 ML OF LA)
     Route: 065

REACTIONS (6)
  - Heart rate increased [Recovered/Resolved]
  - Extrasystoles [Recovered/Resolved]
  - Incorrect route of product administration [Recovered/Resolved]
  - Local anaesthetic systemic toxicity [Recovered/Resolved]
  - Ventricular arrhythmia [Recovered/Resolved]
  - Blood pressure increased [Recovered/Resolved]
